FAERS Safety Report 9442937 (Version 1)
Quarter: 2013Q3

REPORT INFORMATION
  Report Type: Spontaneous
  Country: US (occurrence: US)
  Receive Date: 20130806
  Receipt Date: 20130806
  Transmission Date: 20140515
  Serious: Yes (Other)
  Sender: FDA-Public Use
  Company Number: US-BAYER-2013-093129

PATIENT
  Age: 17 Year
  Sex: Female

DRUGS (1)
  1. GIANVI [Suspect]
     Route: 048

REACTIONS (1)
  - Coeliac disease [None]
